APPROVED DRUG PRODUCT: ESTRADIOL CYPIONATE
Active Ingredient: ESTRADIOL CYPIONATE
Strength: 5MG/ML
Dosage Form/Route: INJECTABLE;INJECTION
Application: A085620 | Product #001
Applicant: DR REDDYS LABORATORIES LTD
Approved: Approved Prior to Jan 1, 1982 | RLD: No | RS: No | Type: DISCN